FAERS Safety Report 5121382-1 (Version None)
Quarter: 2006Q4

REPORT INFORMATION
  Report Type: 
  Country: None (occurrence: None)
  Receive Date: 20061002
  Receipt Date: 20060922
  Transmission Date: 20070319
  Serious: Yes (Hospitalization)
  Sender: FDA-Public Use
  Company Number: 163-21880-06090906

PATIENT
  Age: 73 Year
  Sex: Female

DRUGS (1)
  1. REVLIMID [Suspect]
     Indication: MULTIPLE MYELOMA
     Dosage: 25 MG, 5 IN 1 D, ORAL
     Route: 048
     Dates: start: 20060825, end: 20060912

REACTIONS (5)
  - DYSPHAGIA [None]
  - LUNG DISORDER [None]
  - NASOPHARYNGEAL DISORDER [None]
  - ORAL SOFT TISSUE DISORDER [None]
  - OXYGEN SATURATION DECREASED [None]
